FAERS Safety Report 24464281 (Version 1)
Quarter: 2024Q4

REPORT INFORMATION
  Report Type: Report from Study
  Country: US (occurrence: US)
  Receive Date: 20241018
  Receipt Date: 20241018
  Transmission Date: 20250114
  Serious: No
  Sender: ROCHE
  Company Number: US-ROCHE-3489587

PATIENT
  Age: 51 Year
  Sex: Male

DRUGS (4)
  1. XOLAIR [Suspect]
     Active Substance: OMALIZUMAB
     Indication: Idiopathic urticaria
     Route: 058
  2. XOLAIR [Suspect]
     Active Substance: OMALIZUMAB
  3. ATORVASTATIN [Concomitant]
     Active Substance: ATORVASTATIN
     Route: 048
  4. LORATADINE [Concomitant]
     Active Substance: LORATADINE
     Route: 048

REACTIONS (7)
  - Skin lesion [Unknown]
  - Urticaria [Not Recovered/Not Resolved]
  - Memory impairment [Unknown]
  - Haemorrhage [Not Recovered/Not Resolved]
  - Feeling hot [Not Recovered/Not Resolved]
  - Weight increased [Unknown]
  - Blood cholesterol increased [Unknown]

NARRATIVE: CASE EVENT DATE: 20231201
